FAERS Safety Report 4625545-0 (Version None)
Quarter: 2005Q2

REPORT INFORMATION
  Report Type: 
  Country: None (occurrence: None)
  Receive Date: 20050401
  Receipt Date: 20031121
  Transmission Date: 20051028
  Serious: Yes (Death)
  Sender: FDA-Public Use
  Company Number: US-MERCK-0311USA02548

PATIENT
  Age: 52 Year
  Sex: Male
  Weight: 93 kg

DRUGS (8)
  1. TAGAMET [Concomitant]
     Indication: DYSPEPSIA
     Route: 048
  2. ALLOPURINOL MSD [Concomitant]
     Indication: GOUT
     Route: 048
  3. VIOXX [Suspect]
     Indication: GOUT
     Route: 048
     Dates: start: 20000101, end: 20010824
  4. VIOXX [Suspect]
     Indication: OSTEOARTHRITIS
     Route: 048
     Dates: start: 20000101, end: 20010824
  5. PEPCID [Concomitant]
     Indication: DYSPEPSIA
     Route: 048
  6. TYLENOL (CAPLET) [Concomitant]
     Route: 065
  7. MAXZIDE [Concomitant]
     Route: 048
  8. DILACOR XR [Concomitant]
     Route: 048

REACTIONS (4)
  - BLOOD CHOLESTEROL INCREASED [None]
  - HIGH DENSITY LIPOPROTEIN DECREASED [None]
  - MYOCARDIAL INFARCTION [None]
  - OSTEOARTHRITIS [None]
